FAERS Safety Report 7560123-5 (Version None)
Quarter: 2011Q2

REPORT INFORMATION
  Report Type: 
  Country: None (occurrence: None)
  Receive Date: 20110621
  Receipt Date: 20101202
  Transmission Date: 20111010
  Serious: Yes (Hospitalization)
  Sender: FDA-Public Use
  Company Number: A0899128A

PATIENT
  Age: 62 Year
  Sex: Female

DRUGS (2)
  1. AVANDIA [Suspect]
     Indication: DIABETES MELLITUS
     Dosage: 8MG PER DAY
     Route: 048
     Dates: start: 20000101
  2. AVANDAMET [Suspect]
     Route: 048
     Dates: start: 20060101

REACTIONS (7)
  - DIZZINESS [None]
  - CARDIAC FAILURE CONGESTIVE [None]
  - HEART RATE INCREASED [None]
  - OXYGEN SUPPLEMENTATION [None]
  - HEART VALVE INCOMPETENCE [None]
  - TREMOR [None]
  - HEART RATE IRREGULAR [None]
